FAERS Safety Report 6356680-7 (Version None)
Quarter: 2009Q3

REPORT INFORMATION
  Report Type: 
  Country: None (occurrence: None)
  Receive Date: 20090910
  Receipt Date: 20090910
  Transmission Date: 20100115
  Serious: Yes (Disabling)
  Sender: FDA-Public Use
  Company Number: None

PATIENT
  Age: 58 Year
  Sex: Male
  Weight: 75.7507 kg

DRUGS (1)
  1. LEVAQUIN [Suspect]
     Indication: PROSTATITIS
     Dosage: 1 TABLET DAILY PO
     Route: 048
     Dates: start: 20090604, end: 20090901

REACTIONS (2)
  - GAIT DISTURBANCE [None]
  - TENDONITIS [None]
